FAERS Safety Report 9770601 (Version 1)
Quarter: 2013Q4

REPORT INFORMATION
  Report Type: Spontaneous
  Country: US (occurrence: US)
  Receive Date: 20131218
  Receipt Date: 20131218
  Transmission Date: 20140711
  Serious: Yes (Hospitalization)
  Sender: FDA-Public Use
  Company Number: US-GLAXOSMITHKLINE-A1053220A

PATIENT
  Age: 69 Year
  Sex: Female

DRUGS (14)
  1. LOVAZA [Suspect]
     Indication: BLOOD TRIGLYCERIDES INCREASED
     Dosage: 2CAP TWICE PER DAY
     Route: 048
     Dates: start: 2008
  2. PENTASA [Concomitant]
  3. PAXIL [Concomitant]
  4. ABILIFY [Concomitant]
  5. CLONAZEPAM [Concomitant]
  6. HUMALOG [Concomitant]
  7. VITAMIN D [Concomitant]
  8. CENTRUM SILVER [Concomitant]
  9. NEXIUM [Concomitant]
  10. LISINOPRIL [Concomitant]
  11. TEMAZEPAM [Concomitant]
  12. UNSPECIFIED MEDICATION [Concomitant]
  13. LOMOTIL [Concomitant]
  14. ANTI-NAUSEA DRUGS [Concomitant]

REACTIONS (5)
  - Blood triglycerides increased [Unknown]
  - Blood cholesterol increased [Unknown]
  - Hypertension [Unknown]
  - Nausea [Unknown]
  - Vomiting [Unknown]
